FAERS Safety Report 20119663 (Version 1)
Quarter: 2021Q4

REPORT INFORMATION
  Report Type: Report from Study
  Country: US (occurrence: US)
  Receive Date: 20211126
  Receipt Date: 20211126
  Transmission Date: 20220303
  Serious: Yes (Other)
  Sender: FDA-Public Use
  Company Number: US-AMGEN-USASL2021182427

PATIENT
  Age: 48 Year
  Sex: Female

DRUGS (3)
  1. REPATHA [Suspect]
     Active Substance: EVOLOCUMAB
     Indication: Blood cholesterol increased
     Dosage: 140 MILLIGRAM, QMO
     Route: 065
     Dates: start: 2020
  2. REPATHA [Suspect]
     Active Substance: EVOLOCUMAB
     Indication: Type IIa hyperlipidaemia
     Dosage: 140 MILLIGRAM, Q2WK
     Route: 065
  3. TOPAMAX [Concomitant]
     Active Substance: TOPIRAMATE

REACTIONS (13)
  - Neuropathy peripheral [Unknown]
  - Spinal stenosis [Not Recovered/Not Resolved]
  - Periarthritis [Unknown]
  - COVID-19 [Unknown]
  - Breast mass [Unknown]
  - Fibromyalgia [Unknown]
  - Osteoarthritis [Not Recovered/Not Resolved]
  - Dry mouth [Unknown]
  - Vitamin D deficiency [Unknown]
  - Alopecia [Unknown]
  - Visual impairment [Unknown]
  - Off label use [Unknown]
  - Cough [Not Recovered/Not Resolved]

NARRATIVE: CASE EVENT DATE: 20211001
